FAERS Safety Report 12050219 (Version 1)
Quarter: 2016Q1

REPORT INFORMATION
  Report Type: Spontaneous
  Country: None (occurrence: None)
  Receive Date: 20160208
  Receipt Date: 20160208
  Transmission Date: 20160526
  Serious: No
  Sender: FDA-Public Use
  Company Number: None

PATIENT
  Age: 63 Year
  Sex: Female

DRUGS (2)
  1. METFORMIN [Suspect]
     Active Substance: METFORMIN HYDROCHLORIDE
  2. AMARYL [Suspect]
     Active Substance: GLIMEPIRIDE

REACTIONS (5)
  - Headache [None]
  - Vision blurred [None]
  - Blood glucose increased [None]
  - Fatigue [None]
  - Cardiovascular disorder [None]
